FAERS Safety Report 16770253 (Version 1)
Quarter: 2019Q3

REPORT INFORMATION
  Report Type: Spontaneous
  Country: GB (occurrence: GB)
  Receive Date: 20190904
  Receipt Date: 20190904
  Transmission Date: 20191005
  Serious: Yes (Hospitalization)
  Sender: FDA-Public Use
  Company Number: GB-TEVA-2019-GB-1100482

PATIENT
  Age: 63 Year
  Sex: Female

DRUGS (15)
  1. PHENOBARBITAL. [Concomitant]
     Active Substance: PHENOBARBITAL
     Dosage: IN THE MORNING - HELD
  2. ADCAL-D3 [Concomitant]
     Active Substance: CALCIUM CARBONATE\CHOLECALCIFEROL
  3. COCODAMOL [Concomitant]
     Active Substance: ACETAMINOPHEN\CODEINE PHOSPHATE
     Dosage: 15MG/500MG ONE OR TWO TO BE TAKEN FOUR TIMES A DAY
  4. BECLOMETASONE [Concomitant]
     Active Substance: BECLOMETHASONE DIPROPIONATE
     Route: 045
  5. ORAMORPH [Concomitant]
     Active Substance: MORPHINE SULFATE
     Dosage: 10MG/5ML AS NECESSARY
  6. VENTOLIN [Concomitant]
     Active Substance: ALBUTEROL SULFATE
     Indication: DYSPNOEA
     Dosage: 2 PUFFS AS NECESSARY
  7. BUTEC [Concomitant]
     Active Substance: BUPRENORPHINE
     Dosage: 10MCG PER HOUR
     Route: 062
  8. CLONAZEPAM. [Concomitant]
     Active Substance: CLONAZEPAM
     Dosage: AT NIGHT
  9. PHENYTOIN SODIUM. [Concomitant]
     Active Substance: PHENYTOIN SODIUM
  10. ROPINIROLE. [Concomitant]
     Active Substance: ROPINIROLE
     Dosage: AT NIGHT
  11. AMOXICILLIN. [Suspect]
     Active Substance: AMOXICILLIN
     Dosage: 1500 MG, 1 DAY
  12. LEVOTHYROXINE SODIUM. [Concomitant]
     Active Substance: LEVOTHYROXINE SODIUM
     Dosage: 100UG + 50UG MORNING
  13. NITROFURANTOIN. [Concomitant]
     Active Substance: NITROFURANTOIN
  14. ALLOPURINOL. [Concomitant]
     Active Substance: ALLOPURINOL
  15. FUROSEMIDE. [Concomitant]
     Active Substance: FUROSEMIDE
     Indication: JOINT SWELLING
     Dosage: IN THE MORNING AS NECESSARY

REACTIONS (2)
  - Hepatotoxicity [Recovered/Resolved]
  - Nausea [Unknown]
